FAERS Safety Report 8176892-X (Version None)
Quarter: 2012Q1

REPORT INFORMATION
  Report Type: 
  Country: None (occurrence: None)
  Receive Date: 20120301
  Receipt Date: 20120220
  Transmission Date: 20120608
  Serious: Yes (Hospitalization, Other)
  Sender: FDA-Public Use
  Company Number: US-PFIZER INC-2012038007

PATIENT
  Age: 52 Year
  Sex: Female

DRUGS (2)
  1. VANCOMYCIN HCL [Suspect]
     Indication: OSTEOMYELITIS
     Dosage: UNK
  2. CEFEPIME [Suspect]
     Indication: OSTEOMYELITIS
     Dosage: UNK

REACTIONS (8)
  - ENCEPHALOPATHY [None]
  - NEUROTOXICITY [None]
  - RENAL FAILURE ACUTE [None]
  - MYOCLONUS [None]
  - BLOOD CREATININE INCREASED [None]
  - MENTAL STATUS CHANGES [None]
  - HYPERKALAEMIA [None]
  - HALLUCINATION [None]
